FAERS Safety Report 7416346-9 (Version None)
Quarter: 2011Q2

REPORT INFORMATION
  Report Type: 
  Country: None (occurrence: None)
  Receive Date: 20110414
  Receipt Date: 20110406
  Transmission Date: 20111010
  Serious: Yes (Hospitalization)
  Sender: FDA-Public Use
  Company Number: US-MUTUAL PHARMACEUTICAL COMPANY, INC.-CLHC20110012

PATIENT
  Sex: Female
  Weight: 84.444 kg

DRUGS (3)
  1. ULORIC [Suspect]
     Route: 048
     Dates: start: 20101004, end: 20101011
  2. WARFARIN [Suspect]
     Route: 065
  3. COLCHICINE [Suspect]
     Route: 048
     Dates: start: 20101008, end: 20101012

REACTIONS (3)
  - OEDEMA PERIPHERAL [None]
  - DRUG INTERACTION [None]
  - INTERNATIONAL NORMALISED RATIO INCREASED [None]
